FAERS Safety Report 21329368 (Version 2)
Quarter: 2022Q3

REPORT INFORMATION
  Report Type: Spontaneous
  Country: CZ (occurrence: CZ)
  Receive Date: 20220913
  Receipt Date: 20220921
  Transmission Date: 20221027
  Serious: Yes (Death, Other)
  Sender: FDA-Public Use
  Company Number: CZ-002147023-NVSC2022CZ178224

PATIENT
  Age: 56 Year
  Sex: Female

DRUGS (9)
  1. AMIODARONE [Suspect]
     Active Substance: AMIODARONE
     Indication: Atrial fibrillation
     Dosage: UNK
     Route: 065
  2. VANCOMYCIN [Suspect]
     Active Substance: VANCOMYCIN
     Indication: Enterocolitis
     Dosage: UNK
     Route: 065
  3. CYCLOSPORINE [Suspect]
     Active Substance: CYCLOSPORINE
     Indication: Immunosuppression
     Dosage: UNK
     Route: 065
  4. MEROPENEM [Concomitant]
     Active Substance: MEROPENEM
     Indication: Enterocolitis
     Dosage: UNK
     Route: 065
  5. PICOPREP [Concomitant]
     Active Substance: ANHYDROUS CITRIC ACID\MAGNESIUM OXIDE\SODIUM PICOSULFATE
     Indication: Product used for unknown indication
     Dosage: UNK
     Route: 065
  6. FIDAXOMICIN [Concomitant]
     Active Substance: FIDAXOMICIN
     Indication: Enterocolitis
     Dosage: UNK
     Route: 065
  7. ANIDULAFUNGIN [Concomitant]
     Active Substance: ANIDULAFUNGIN
     Indication: Enterocolitis
     Dosage: UNK
     Route: 065
  8. METRONIDAZOLE [Concomitant]
     Active Substance: METRONIDAZOLE
     Indication: Enterocolitis
     Dosage: UNK
     Route: 065
  9. GANCICLOVIR [Concomitant]
     Active Substance: GANCICLOVIR
     Indication: Cytomegalovirus infection
     Dosage: UNK
     Route: 065

REACTIONS (20)
  - Septic shock [Fatal]
  - Oxygen saturation decreased [Not Recovered/Not Resolved]
  - Metabolic acidosis [Unknown]
  - Multiple organ dysfunction syndrome [Unknown]
  - Fluid balance positive [Unknown]
  - Hyperkalaemia [Unknown]
  - Dyspnoea at rest [Unknown]
  - Anuria [Unknown]
  - Sputum abnormal [Unknown]
  - Disseminated intravascular coagulation [Recovered/Resolved]
  - Serum ferritin increased [Unknown]
  - Brain stem ischaemia [Unknown]
  - Hypovolaemia [Unknown]
  - Interstitial lung disease [Unknown]
  - Left ventricular dysfunction [Unknown]
  - Ventricular hypokinesia [Unknown]
  - Anaemia [Unknown]
  - Cardiac arrest [Unknown]
  - Thrombocytopenia [Unknown]
  - Fatigue [Unknown]

NARRATIVE: CASE EVENT DATE: 20220707
